FAERS Safety Report 20560355 (Version 7)
Quarter: 2023Q4

REPORT INFORMATION
  Report Type: Spontaneous
  Country: US (occurrence: US)
  Receive Date: 20220307
  Receipt Date: 20231220
  Transmission Date: 20240109
  Serious: Yes (Disabling, Other)
  Sender: FDA-Public Use
  Company Number: US-PFIZER INC-202200324001

PATIENT
  Age: 78 Year
  Sex: Female
  Weight: 122.45 kg

DRUGS (2)
  1. XELJANZ XR [Suspect]
     Active Substance: TOFACITINIB CITRATE
     Indication: Rheumatoid arthritis
     Dosage: 11 MG, 1X/DAY
     Dates: start: 202006
  2. XELJANZ XR [Suspect]
     Active Substance: TOFACITINIB CITRATE
     Dosage: 11 MG, DAILY
     Dates: start: 202102

REACTIONS (8)
  - Breast cancer [Unknown]
  - Loss of personal independence in daily activities [Unknown]
  - Visual impairment [Unknown]
  - Spinal operation [Unknown]
  - Drug ineffective [Unknown]
  - Frustration tolerance decreased [Unknown]
  - Asthma [Not Recovered/Not Resolved]
  - Fall [Unknown]

NARRATIVE: CASE EVENT DATE: 20230301
